FAERS Safety Report 13677027 (Version 1)
Quarter: 2017Q2

REPORT INFORMATION
  Report Type: Spontaneous
  Country: FR (occurrence: FR)
  Receive Date: 20170622
  Receipt Date: 20170622
  Transmission Date: 20170830
  Serious: Yes (Hospitalization)
  Sender: FDA-Public Use
  Company Number: PHHY2017FR089357

PATIENT
  Sex: Male

DRUGS (2)
  1. RITALINE [Suspect]
     Active Substance: METHYLPHENIDATE HYDROCHLORIDE
     Indication: PRODUCT USED FOR UNKNOWN INDICATION
     Route: 042
  2. METHADONE AP HP [Suspect]
     Active Substance: METHADONE HYDROCHLORIDE
     Indication: PRODUCT USED FOR UNKNOWN INDICATION
     Route: 048

REACTIONS (4)
  - Depersonalisation/derealisation disorder [Recovered/Resolved]
  - Drug use disorder [Unknown]
  - Psychotic disorder [Recovered/Resolved]
  - Hallucination [Recovered/Resolved]

NARRATIVE: CASE EVENT DATE: 20160101
